FAERS Safety Report 24031198 (Version 1)
Quarter: 2024Q2

REPORT INFORMATION
  Report Type: Spontaneous
  Country: IT (occurrence: IT)
  Receive Date: 20240629
  Receipt Date: 20240629
  Transmission Date: 20240716
  Serious: Yes (Other)
  Sender: FDA-Public Use
  Company Number: IT-MINISAL02-981031

PATIENT
  Age: 75 Year
  Sex: Female

DRUGS (1)
  1. CARBOPLATIN [Suspect]
     Active Substance: CARBOPLATIN
     Indication: Vaginal adenocarcinoma
     Dosage: 316 MILLIGRAM,21 DAY (316 MG DOSE TOTALE OGNI 21 GIORNI )
     Route: 042
     Dates: start: 20240320, end: 20240411

REACTIONS (3)
  - Erythema [Recovered/Resolved]
  - Hypoxia [Recovered/Resolved]
  - Hypotension [Recovered/Resolved]

NARRATIVE: CASE EVENT DATE: 20240411
